FAERS Safety Report 6610742-5 (Version None)
Quarter: 2010Q1

REPORT INFORMATION
  Report Type: 
  Country: None (occurrence: None)
  Receive Date: 20100302
  Receipt Date: 20100219
  Transmission Date: 20100710
  Serious: Yes (Hospitalization)
  Sender: FDA-Public Use
  Company Number: B0601950A

PATIENT
  Sex: Female

DRUGS (19)
  1. MELPHALAN [Suspect]
     Indication: MULTIPLE MYELOMA
     Dosage: .25MGK PER DAY
     Dates: start: 20090917, end: 20090917
  2. THALIDOMIDE [Suspect]
     Indication: MULTIPLE MYELOMA
     Dosage: 200MG PER DAY
     Route: 048
     Dates: start: 20090917, end: 20090917
  3. PREDNISONE [Suspect]
     Indication: MULTIPLE MYELOMA
     Dosage: 2MGK PER DAY
     Dates: start: 20090917, end: 20090917
  4. LEVOTHYROX [Concomitant]
     Indication: HYPOTHYROIDISM
     Dosage: 125MG PER DAY
     Route: 048
  5. NEXIUM [Concomitant]
     Dosage: 20MG PER DAY
     Route: 048
     Dates: start: 20040101
  6. ASPEGIC 1000 [Concomitant]
     Indication: BONE PAIN
     Route: 048
     Dates: start: 20030101, end: 20090827
  7. DIANTALVIC [Concomitant]
     Indication: BONE PAIN
     Dosage: 400MG AS REQUIRED
  8. LEXOMIL [Concomitant]
     Indication: DRUG USE FOR UNKNOWN INDICATION
     Dosage: 6MG PER DAY
     Route: 048
     Dates: start: 20090821
  9. LOXEN [Concomitant]
     Dosage: 20MG AS REQUIRED
     Route: 048
     Dates: start: 20090821, end: 20090828
  10. KARDEGIC [Concomitant]
     Indication: DRUG USE FOR UNKNOWN INDICATION
     Dosage: 160MG PER DAY
     Route: 048
  11. PARACETAMOL [Concomitant]
     Indication: BONE PAIN
     Dosage: 3G THREE TIMES PER DAY
     Route: 048
     Dates: start: 20090820
  12. ACUPAN [Concomitant]
     Indication: BONE PAIN
     Dosage: 80MG FOUR TIMES PER DAY
     Route: 030
     Dates: start: 20090820
  13. LYRICA [Concomitant]
     Indication: PAIN
     Dosage: 50MG TWICE PER DAY
     Route: 048
     Dates: start: 20090828
  14. DIFFU K [Concomitant]
     Indication: PROPHYLAXIS
     Dosage: 1800MG THREE TIMES PER DAY
     Route: 048
     Dates: start: 20090828
  15. ACETAMINOPHEN AND CODEINE PHOSPHATE [Concomitant]
     Indication: BONE PAIN
     Dosage: 2000MG FOUR TIMES PER DAY
     Route: 048
     Dates: start: 20090824
  16. OXYCONTIN [Concomitant]
     Indication: PROPHYLAXIS
     Dosage: 20MG TWICE PER DAY
     Route: 048
     Dates: start: 20090821, end: 20090823
  17. OXYCODONE HCL [Concomitant]
     Route: 048
     Dates: start: 20090821, end: 20090823
  18. EMLA [Concomitant]
     Indication: DRUG USE FOR UNKNOWN INDICATION
     Dosage: 25MG PER DAY
     Dates: start: 20090817
  19. LOVENOX [Concomitant]
     Indication: THROMBOSIS PROPHYLAXIS
     Route: 058
     Dates: start: 20090917

REACTIONS (2)
  - FOOD INTOLERANCE [None]
  - VOMITING [None]
